FAERS Safety Report 23180868 (Version 1)
Quarter: 2023Q4

REPORT INFORMATION
  Report Type: Report from Study
  Country: AU (occurrence: AU)
  Receive Date: 20231114
  Receipt Date: 20231114
  Transmission Date: 20240110
  Serious: Yes (Other)
  Sender: FDA-Public Use
  Company Number: AU-002147023-NVSC2023AU239311

PATIENT
  Sex: Male

DRUGS (1)
  1. MAYZENT [Suspect]
     Active Substance: SIPONIMOD
     Indication: Relapsing-remitting multiple sclerosis
     Dosage: 2 MG, QD
     Route: 048
     Dates: start: 20230327

REACTIONS (4)
  - Multiple sclerosis [Unknown]
  - Feeling drunk [Unknown]
  - Muscle spasms [Unknown]
  - Insomnia [Unknown]

NARRATIVE: CASE EVENT DATE: 20230101
